FAERS Safety Report 4809774-9 (Version None)
Quarter: 2005Q4

REPORT INFORMATION
  Report Type: 
  Country: None (occurrence: None)
  Receive Date: 20051024
  Receipt Date: 20051010
  Transmission Date: 20060501
  Serious: Yes (Hospitalization)
  Sender: FDA-Public Use
  Company Number: S05-USA-04628-02

PATIENT
  Sex: Female
  Weight: 2.7783 kg

DRUGS (2)
  1. LEXAPRO [Suspect]
     Dosage: 10 MG QD TRANSPLACENTAL
     Route: 064
     Dates: end: 20051005
  2. LEXAPRO [Suspect]
     Dosage: 10 MG QD BF
     Dates: start: 20051006, end: 20051010

REACTIONS (3)
  - BREATH HOLDING [None]
  - HEART RATE DECREASED [None]
  - OXYGEN SATURATION DECREASED [None]
